FAERS Safety Report 4485225-1 (Version None)
Quarter: 2004Q4

REPORT INFORMATION
  Report Type: 
  Country: None (occurrence: None)
  Receive Date: 20041026
  Receipt Date: 20040713
  Transmission Date: 20050328
  Serious: No
  Sender: FDA-Public Use
  Company Number: US-BRISTOL-MYERS SQUIBB COMPANY-12640280

PATIENT
  Age: 46 Year
  Sex: Female
  Weight: 66 kg

DRUGS (3)
  1. GLUCOPHAGE XR [Suspect]
     Indication: POLYCYSTIC OVARIES
     Route: 048
  2. GLUCOPHAGE [Suspect]
     Indication: POLYCYSTIC OVARIES
     Dosage: DISCONTINUED ^ABOUT 2 YEARS AGO^
  3. FERROUS SULFATE TAB [Concomitant]

REACTIONS (5)
  - ABDOMINAL DISTENSION [None]
  - DIARRHOEA [None]
  - HYPERHIDROSIS [None]
  - NAUSEA [None]
  - VOMITING [None]
